FAERS Safety Report 10236409 (Version 5)
Quarter: 2015Q2

REPORT INFORMATION
  Report Type: Report from Study
  Country: IL (occurrence: IL)
  Receive Date: 20140613
  Receipt Date: 20150409
  Transmission Date: 20150821
  Serious: Yes (Hospitalization)
  Sender: FDA-Public Use
  Company Number: IL-BAYER-2014-086769

PATIENT
  Age: 72 Year
  Sex: Male
  Weight: 70 kg

DRUGS (7)
  1. RADIUM-223 DICHLORIDE [Suspect]
     Active Substance: RADIUM RA-223 DICHLORIDE
     Indication: PROSTATE CANCER STAGE IV
     Dosage: 50 KBQ/KG X 4 WEEKS
     Route: 042
     Dates: start: 20140714, end: 20140714
  2. MICROPIRIN [Concomitant]
     Indication: ANTICOAGULANT THERAPY
     Dosage: 100 MG DAILY
     Route: 048
  3. RADIUM-223 DICHLORIDE [Suspect]
     Active Substance: RADIUM RA-223 DICHLORIDE
     Indication: PROSTATE CANCER STAGE IV
     Dosage: 50 KBQ/KG X 4 WEEKS
     Route: 042
     Dates: start: 20140428, end: 20140428
  4. TRITACE [Concomitant]
     Active Substance: RAMIPRIL
     Indication: HYPERTENSION
     Dosage: 25 MG DAILY
     Route: 048
  5. DIMITONE [Concomitant]
     Indication: HYPERTENSION
     Dosage: 6.25 MG, TID
     Route: 048
  6. RADIUM-223 DICHLORIDE [Suspect]
     Active Substance: RADIUM RA-223 DICHLORIDE
     Indication: PROSTATE CANCER STAGE IV
     Dosage: 50 KBQ/KG X 4 WEEKS
     Route: 042
     Dates: start: 20140928, end: 20140928
  7. RADIUM-223 DICHLORIDE [Suspect]
     Active Substance: RADIUM RA-223 DICHLORIDE
     Indication: METASTASES TO BONE
     Dosage: 50 KBQ/KG X 4 WEEKS
     Route: 042
     Dates: start: 20140526, end: 20140526

REACTIONS (3)
  - Chest pain [Recovered/Resolved]
  - Pulmonary congestion [None]
  - Malignant neoplasm progression [None]

NARRATIVE: CASE EVENT DATE: 20140605
